FAERS Safety Report 9163757 (Version 1)
Quarter: 2012Q4

REPORT INFORMATION
  Report Type: 
  Country: FR (occurrence: FR)
  Receive Date: 20121204
  Receipt Date: 20121204
  Transmission Date: 20130627
  Serious: Yes (Hospitalization)
  Sender: FDA-Public Use
  Company Number: FR-RB-047341-12

PATIENT
  Age: 41 Year
  Sex: Male

DRUGS (1)
  1. BUPRENORPHINE [Suspect]
     Indication: INTENTIONAL DRUG MISUSE
     Route: 042

REACTIONS (2)
  - Oedema [Unknown]
  - Intentional drug misuse [Unknown]
